FAERS Safety Report 8758591 (Version 1)
Quarter: 2012Q4

REPORT INFORMATION
  Report Type: 
  Country: US (occurrence: US)
  Receive Date: 20120829
  Receipt Date: 20120829
  Transmission Date: 20130627
  Serious: No
  Sender: FDA-Public Use
  Company Number: US-BAYER-2012-088737

PATIENT
  Age: 88 Year
  Sex: Male
  Weight: 76 kg

DRUGS (3)
  1. ALEVE CAPLET/TABLET,MIDOL EXTENDED RELIEF CAPLET [Suspect]
     Indication: BACK PAIN
     Dosage: UNK, PRN
     Route: 048
     Dates: start: 2012, end: 20120822
  2. CENTRUM SILVER [Concomitant]
     Dosage: UNK
  3. VITAMIN B12 [Concomitant]
     Dosage: UNK

REACTIONS (1)
  - Back pain [Unknown]
